FAERS Safety Report 23506551 (Version 1)
Quarter: 2024Q1

REPORT INFORMATION
  Report Type: Spontaneous
  Country: US (occurrence: None)
  Receive Date: 20240208
  Receipt Date: 20240208
  Transmission Date: 20240410
  Serious: Yes (Hospitalization)
  Sender: FDA-Public Use
  Company Number: None

PATIENT
  Age: 77 Year
  Sex: Male

DRUGS (1)
  1. ZYTIGA [Suspect]
     Active Substance: ABIRATERONE ACETATE
     Indication: Prostate cancer
     Dosage: FREQUENCY : DAILY;?

REACTIONS (5)
  - Therapy interrupted [None]
  - Malaise [None]
  - Atrial fibrillation [None]
  - SARS-CoV-2 test positive [None]
  - Cough [None]

NARRATIVE: CASE EVENT DATE: 20240204
